FAERS Safety Report 4673742-0 (Version None)
Quarter: 2005Q2

REPORT INFORMATION
  Report Type: 
  Country: None (occurrence: None)
  Receive Date: 20050523
  Receipt Date: 20050510
  Transmission Date: 20051028
  Serious: Yes (Other)
  Sender: FDA-Public Use
  Company Number: 2005072689

PATIENT
  Age: 37 Year
  Sex: Female
  Weight: 117.9352 kg

DRUGS (7)
  1. BEXTRA [Suspect]
     Indication: ARTHRALGIA
     Dates: end: 20050415
  2. NEURONTIN [Suspect]
     Indication: ARTHRALGIA
     Dosage: 900 MG (300 MG, 3 IN 1 D); ORAL
     Route: 048
     Dates: start: 20000101, end: 20010101
  3. CELEBREX [Suspect]
     Indication: ARTHRALGIA
     Dosage: UNKNOWN (200 MG, UNKNOWN); ORAL
     Route: 048
  4. ALL OTHER THERAPEUTIC PRODUCTS [Concomitant]
  5. ALL OTHER THERAPEUTIC PRODUCTS [Concomitant]
  6. VICODIN [Concomitant]
  7. PROPACET 100 [Concomitant]

REACTIONS (8)
  - CONDITION AGGRAVATED [None]
  - DIARRHOEA [None]
  - GASTRIC DISORDER [None]
  - HEADACHE [None]
  - HYPERTENSION [None]
  - LIGAMENT INJURY [None]
  - OSTEOARTHRITIS [None]
  - SPINAL FRACTURE [None]
